FAERS Safety Report 9049224 (Version 2)
Quarter: 2013Q2

REPORT INFORMATION
  Report Type: Spontaneous
  Country: US (occurrence: None)
  Receive Date: 20120525
  Receipt Date: 20120827
  Transmission Date: 20140414
  Serious: Yes (Other)
  Sender: FDA-Public Use
  Company Number: 344714

PATIENT
  Age: 40 Year
  Sex: Male
  Weight: 91.6 kg

DRUGS (6)
  1. GLUCAGON [Suspect]
     Indication: TYPE 1 DIABETES MELLITUS
     Route: 030
     Dates: start: 20120207, end: 20120207
  2. NOVOLOG [Suspect]
     Indication: TYPE 1 DIABETES MELLITUS
     Dosage: SINGLE, SUBCUTAN.-PUMP
     Route: 058
     Dates: start: 201106
  3. VICTOZA (LIRAGLUTIDE) SOLUTION FOR INJECTION, 6 MG/ML [Suspect]
     Indication: WEIGHT DECREASED
     Route: 058
     Dates: start: 201107
  4. SIMVASTATIN +PHARMA (SIMVASTATIN) [Concomitant]
  5. ALBUTEROL   /00139501/ (SALBUTAMOL) [Concomitant]
  6. ASPIRIN (E.C.) (ACETYLSALICYLIC ACID) [Concomitant]

REACTIONS (1)
  - Blood glucose decreased [None]
